FAERS Safety Report 10761533 (Version 1)
Quarter: 2015Q1

REPORT INFORMATION
  Report Type: Spontaneous
  Country: US (occurrence: None)
  Receive Date: 20150128
  Receipt Date: 20150128
  Transmission Date: 20150721
  Serious: Yes (Death, Hospitalization)
  Sender: FDA-Public Use
  Company Number: 1435168

PATIENT
  Age: 78 Year
  Sex: Male

DRUGS (9)
  1. BENDAMUSTINE (BENDAMUSTINE) (BENDAMUSTINE) [Suspect]
     Active Substance: BENDAMUSTINE
     Indication: DIFFUSE LARGE B-CELL LYMPHOMA
     Dosage: ON DAYS 2-3 OF 28 DAYS CYCLE (90 MG/M2), UNKNOWN
  2. ASPIRIN (ASPIRIN) [Concomitant]
     Active Substance: ASPIRIN
  3. PALONOSETRON (PALONESETRON) [Concomitant]
  4. PROCHLORPERAZINE (PROCHLORPERAZINE) [Concomitant]
     Active Substance: PROCHLORPERAZINE
  5. LEVOTHYROXINE (LEVOTHYROXINE) [Concomitant]
     Active Substance: LEVOTHYROXINE
  6. RITUXIMAB (RITUXIMAB) [Suspect]
     Active Substance: RITUXIMAB
     Indication: DIFFUSE LARGE B-CELL LYMPHOMA
     Dosage: ON DAY 1 (375 MG/M2, 1 IN 28), UNKNOWN
  7. ALLOPURINOL (ALLOPURINOL) [Suspect]
     Active Substance: ALLOPURINOL
     Indication: DIFFUSE LARGE B-CELL LYMPHOMA
     Route: 048
  8. LORAZEPAM (LORAZEPAM) [Concomitant]
     Active Substance: LORAZEPAM
  9. DEXAMETHASONE (DEXAMETHASONE) [Concomitant]
     Active Substance: DEXAMETHASONE

REACTIONS (2)
  - Stevens-Johnson syndrome [None]
  - Toxic epidermal necrolysis [None]
